FAERS Safety Report 6837567-X (Version None)
Quarter: 2010Q3

REPORT INFORMATION
  Report Type: 
  Country: None (occurrence: None)
  Receive Date: 20100713
  Receipt Date: 20070516
  Transmission Date: 20110219
  Serious: No
  Sender: FDA-Public Use
  Company Number: US-PFIZER INC-2007040600

PATIENT
  Sex: Female
  Weight: 72.7 kg

DRUGS (4)
  1. CHANTIX [Suspect]
     Indication: NICOTINE DEPENDENCE
     Dates: start: 20070511
  2. WELLBUTRIN [Concomitant]
  3. PREMPRO [Concomitant]
  4. VITAMINS [Concomitant]

REACTIONS (1)
  - SOMNOLENCE [None]
